FAERS Safety Report 4825388-9 (Version None)
Quarter: 2005Q4

REPORT INFORMATION
  Report Type: 
  Country: None (occurrence: None)
  Receive Date: 20051111
  Receipt Date: 20051103
  Transmission Date: 20060501
  Serious: Yes (Other)
  Sender: FDA-Public Use
  Company Number: CO-MERCK-0511COL00003

PATIENT
  Age: 54 Year
  Sex: Female
  Weight: 76 kg

DRUGS (3)
  1. HYZAAR [Suspect]
     Indication: HYPERTENSION
     Route: 048
  2. VERAPAMIL [Concomitant]
     Route: 048
  3. ISOSORBIDE DINITRATE [Concomitant]
     Route: 048

REACTIONS (1)
  - ISCHAEMIC CARDIOMYOPATHY [None]
